FAERS Safety Report 8001762 (Version 14)
Quarter: 2013Q3

REPORT INFORMATION
  Report Type: Report from Study
  Country: CA (occurrence: CA)
  Receive Date: 20110622
  Receipt Date: 20130703
  Transmission Date: 20140515
  Serious: Yes (Other)
  Sender: FDA-Public Use
  Company Number: CA-ROCHE-782260

PATIENT
  Age: 30 Year
  Sex: Male
  Weight: 55 kg

DRUGS (3)
  1. AVASTIN [Suspect]
     Indication: NEUROFIBROMATOSIS
     Route: 042
  2. AVASTIN [Suspect]
     Route: 042
  3. TEGRETOL [Concomitant]

REACTIONS (10)
  - Aspartate aminotransferase increased [Not Recovered/Not Resolved]
  - Alanine aminotransferase increased [Not Recovered/Not Resolved]
  - Blood lactate dehydrogenase increased [Not Recovered/Not Resolved]
  - Myalgia [Recovered/Resolved]
  - Proteinuria [Recovering/Resolving]
  - Nephrolithiasis [Recovered/Resolved]
  - Back pain [Recovered/Resolved]
  - Cough [Recovered/Resolved]
  - Nasopharyngitis [Recovering/Resolving]
  - Headache [Recovered/Resolved]
